FAERS Safety Report 14008999 (Version 10)
Quarter: 2020Q2

REPORT INFORMATION
  Report Type: Report from Study
  Country: GB (occurrence: GB)
  Receive Date: 20170925
  Receipt Date: 20200607
  Transmission Date: 20200713
  Serious: Yes (Other)
  Sender: FDA-Public Use
  Company Number: GB-BRISTOL-MYERS SQUIBB COMPANY-BMS-2016-016843

PATIENT
  Age: 53 Year
  Sex: Female

DRUGS (1)
  1. ABATACEPT [Suspect]
     Active Substance: ABATACEPT
     Indication: RHEUMATOID ARTHRITIS
     Dosage: 125 MILLIGRAM, QWK
     Route: 058
     Dates: start: 20160126

REACTIONS (9)
  - Viral infection [Unknown]
  - Drug ineffective [Unknown]
  - Oral herpes [Unknown]
  - Infection [Unknown]
  - Blood urine present [Unknown]
  - Urinary tract infection [Unknown]
  - Pharyngitis [Not Recovered/Not Resolved]
  - Tooth disorder [Unknown]
  - Lower respiratory tract infection [Not Recovered/Not Resolved]

NARRATIVE: CASE EVENT DATE: 20160213
